FAERS Safety Report 8623000-4 (Version None)
Quarter: 2012Q3

REPORT INFORMATION
  Report Type: 
  Country: None (occurrence: None)
  Receive Date: 20120827
  Receipt Date: 20120814
  Transmission Date: 20120928
  Serious: Yes (Other)
  Sender: FDA-Public Use
  Company Number: FR-JNJFOC-20120810290

PATIENT

DRUGS (1)
  1. INFLIXIMAB, RECOMBINANT [Suspect]
     Indication: ERYTHRODERMIC PSORIASIS
     Dosage: WEEK 0, WEEK 2, WEEK 6 THEN EVERY OTHER 8 WEEKS
     Route: 042

REACTIONS (1)
  - SUICIDE ATTEMPT [None]
